FAERS Safety Report 6615681-1 (Version None)
Quarter: 2010Q1

REPORT INFORMATION
  Report Type: 
  Country: None (occurrence: None)
  Receive Date: 20100305
  Receipt Date: 20100224
  Transmission Date: 20100710
  Serious: Yes (Hospitalization)
  Sender: FDA-Public Use
  Company Number: US-ROCHE-688048

PATIENT
  Sex: Female

DRUGS (2)
  1. AVASTIN [Suspect]
     Indication: OVARIAN CANCER
     Route: 065
     Dates: start: 20091001, end: 20091210
  2. DOXIL [Suspect]
     Indication: OVARIAN CANCER
     Route: 065
     Dates: start: 20091001, end: 20091201

REACTIONS (1)
  - PLEURAL EFFUSION [None]
